FAERS Safety Report 7741816-3 (Version None)
Quarter: 2011Q3

REPORT INFORMATION
  Report Type: 
  Country: None (occurrence: None)
  Receive Date: 20110912
  Receipt Date: 20110902
  Transmission Date: 20111222
  Serious: Yes (Other)
  Sender: FDA-Public Use
  Company Number: PR-PFIZER INC-810-0981-M0100001

PATIENT
  Sex: Female
  Weight: 60.78 kg

DRUGS (1)
  1. ATORVASTATIN CALCIUM [Suspect]
     Dosage: DAILY
     Route: 048

REACTIONS (2)
  - MYALGIA [None]
  - HAEMATURIA [None]
